FAERS Safety Report 20572031 (Version 2)
Quarter: 2022Q2

REPORT INFORMATION
  Report Type: Spontaneous
  Country: NL (occurrence: NL)
  Receive Date: 20220309
  Receipt Date: 20220418
  Transmission Date: 20220721
  Serious: No
  Sender: FDA-Public Use
  Company Number: NL-FERRINGPH-2022FE00876

PATIENT

DRUGS (1)
  1. GONADORELIN [Suspect]
     Active Substance: GONADORELIN
     Indication: Ovulation induction
     Dosage: 16 UG 90 MIN
     Route: 058
     Dates: start: 202107, end: 202203

REACTIONS (1)
  - Silent thyroiditis [Recovered/Resolved]
